FAERS Safety Report 17686866 (Version 1)
Quarter: 2020Q2

REPORT INFORMATION
  Report Type: Spontaneous
  Country: GB (occurrence: GB)
  Receive Date: 20200421
  Receipt Date: 20200421
  Transmission Date: 20200714
  Serious: Yes (Other)
  Sender: FDA-Public Use
  Company Number: GB-UCBSA-2020016485

PATIENT
  Age: 65 Year
  Sex: Male
  Weight: 95.25 kg

DRUGS (3)
  1. VIRIDAL DUO [Suspect]
     Active Substance: ALPROSTADIL
     Indication: ERECTILE DYSFUNCTION
     Dosage: 40 MICROGRAM, 1 DAY
     Route: 051
     Dates: start: 20200328, end: 20200329
  2. INDAPAMIDE. [Concomitant]
     Active Substance: INDAPAMIDE
     Indication: PRODUCT USED FOR UNKNOWN INDICATION
  3. LOSARTAN POTASSIUM. [Concomitant]
     Active Substance: LOSARTAN POTASSIUM
     Indication: PRODUCT USED FOR UNKNOWN INDICATION

REACTIONS (1)
  - Myalgia [Recovered/Resolved]

NARRATIVE: CASE EVENT DATE: 20200328
